FAERS Safety Report 7592163-4 (Version None)
Quarter: 2011Q3

REPORT INFORMATION
  Report Type: 
  Country: None (occurrence: None)
  Receive Date: 20110706
  Receipt Date: 20110629
  Transmission Date: 20111222
  Serious: Yes (Hospitalization, Other)
  Sender: FDA-Public Use
  Company Number: FR-SANOFI-AVENTIS-2011SA011204

PATIENT
  Age: 63 Year
  Sex: Female

DRUGS (26)
  1. ESCITALOPRAM OXALATE [Concomitant]
     Dosage: 10 MG MORNING AND 5 MG EVENING FOR ONE MONTH TO REPRESCRIBE
     Route: 048
     Dates: start: 20060725
  2. DESLORATADINE [Concomitant]
     Route: 065
     Dates: start: 20061002
  3. ACETAMINOPHEN [Concomitant]
     Route: 048
     Dates: start: 20080109, end: 20080401
  4. HYPERICUM PERFORATUM EXTRACT [Concomitant]
  5. OFLOXACIN [Concomitant]
     Route: 048
     Dates: start: 20090716, end: 20090720
  6. ZOLPIDEM [Suspect]
     Route: 048
     Dates: start: 19930101
  7. ESCITALOPRAM OXALATE [Concomitant]
     Route: 048
  8. IBUPROFEN [Concomitant]
     Route: 048
     Dates: start: 20090106, end: 20090201
  9. ZYPREXA [Concomitant]
     Route: 048
     Dates: start: 20100623, end: 20100701
  10. ACETAMINOPHEN [Concomitant]
     Route: 048
     Dates: start: 20090716
  11. EFFEXOR [Concomitant]
     Route: 065
     Dates: start: 20080109, end: 20101001
  12. ALPRAZOLAM [Concomitant]
     Route: 048
     Dates: start: 20060725
  13. PAROXETINE HCL [Concomitant]
     Route: 048
     Dates: start: 20060803
  14. SPASMAG [Concomitant]
     Route: 048
     Dates: start: 20090724
  15. HERBAL PREPARATION [Concomitant]
     Route: 065
  16. RISPERDAL [Concomitant]
     Route: 055
     Dates: start: 20100707, end: 20100830
  17. XANAX [Concomitant]
     Indication: SUICIDAL IDEATION
     Route: 048
     Dates: start: 20090703, end: 20100801
  18. LYRICA [Concomitant]
     Route: 048
     Dates: start: 20100830, end: 20101019
  19. EFFEXOR [Concomitant]
     Route: 048
     Dates: start: 20110622
  20. IMOVANE [Concomitant]
     Route: 048
     Dates: start: 20090716
  21. ZOLPIDEM [Suspect]
     Route: 048
     Dates: start: 20060725, end: 20110206
  22. XANAX [Concomitant]
     Route: 048
     Dates: start: 20090703, end: 20100801
  23. ATARAX [Concomitant]
     Indication: INSOMNIA
     Route: 048
     Dates: start: 20061002
  24. TEMAZEPAM [Concomitant]
     Route: 048
     Dates: start: 20080109
  25. DIHYDROERGOTAMINE MESYLATE [Concomitant]
     Route: 048
     Dates: start: 20100120, end: 20100401
  26. CURCUMA LONGA [Concomitant]
     Route: 048
     Dates: start: 20091021

REACTIONS (19)
  - NAUSEA [None]
  - ACCIDENT AT HOME [None]
  - NERVOUSNESS [None]
  - DYSGEUSIA [None]
  - SLEEP APNOEA SYNDROME [None]
  - DECREASED APPETITE [None]
  - INSOMNIA [None]
  - WITHDRAWAL SYNDROME [None]
  - SPEECH DISORDER [None]
  - TOXICITY TO VARIOUS AGENTS [None]
  - MALAISE [None]
  - FALL [None]
  - APHASIA [None]
  - MENTAL DISORDER [None]
  - DAYDREAMING [None]
  - TRANSIENT ISCHAEMIC ATTACK [None]
  - CONDITION AGGRAVATED [None]
  - DISORIENTATION [None]
  - CONFUSIONAL STATE [None]
